FAERS Safety Report 7018233-7 (Version None)
Quarter: 2010Q3

REPORT INFORMATION
  Report Type: 
  Country: None (occurrence: None)
  Receive Date: 20100924
  Receipt Date: 20100914
  Transmission Date: 20110219
  Serious: Yes (Other)
  Sender: FDA-Public Use
  Company Number: 018765

PATIENT
  Age: 47 Year
  Sex: Female
  Weight: 58 kg

DRUGS (3)
  1. KEPPRA [Suspect]
     Indication: CONVULSION
     Dosage: 1500 MG THREE 500MG TABLET IN THE MORNING ORAL, 1500 MG BID THREE 500 MG TABLET IN THE MORNING AND T
     Route: 048
     Dates: start: 20080101
  2. KEPPRA [Suspect]
     Indication: CONVULSION
     Dosage: 1500 MG THREE 500MG TABLET IN THE MORNING ORAL, 1500 MG BID THREE 500 MG TABLET IN THE MORNING AND T
     Route: 048
     Dates: start: 20090101
  3. DILANTIN [Suspect]
     Indication: CONVULSION
     Dosage: ORAL, 360 MG THREE 100 MG CAPSULE AND TWO 30 MG CAPSULE ORAL
     Route: 048
     Dates: start: 20060101

REACTIONS (6)
  - DRUG INEFFECTIVE [None]
  - GINGIVAL SWELLING [None]
  - HYPERTENSION [None]
  - MYOCARDIAL INFARCTION [None]
  - TOOTH LOSS [None]
  - TOOTHACHE [None]
